FAERS Safety Report 7010982-X (Version None)
Quarter: 2010Q3

REPORT INFORMATION
  Report Type: 
  Country: None (occurrence: None)
  Receive Date: 20100923
  Receipt Date: 20081103
  Transmission Date: 20110219
  Serious: Yes (Life-Threatening)
  Sender: FDA-Public Use
  Company Number: US-WYE-H06699308

PATIENT
  Sex: Male

DRUGS (1)
  1. ZOSYN [Suspect]
     Indication: PREOPERATIVE CARE
     Dosage: UNKNOWN
     Route: 042
     Dates: start: 20081031

REACTIONS (1)
  - ANAPHYLACTIC REACTION [None]
